FAERS Safety Report 25838103 (Version 1)
Quarter: 2025Q3

REPORT INFORMATION
  Report Type: Spontaneous
  Country: US (occurrence: US)
  Receive Date: 20250923
  Receipt Date: 20250923
  Transmission Date: 20251021
  Serious: No
  Sender: ANI
  Company Number: US-ANIPHARMA-2025-US-028962

PATIENT
  Age: 52 Year
  Sex: Female

DRUGS (1)
  1. CORTICOTROPIN [Suspect]
     Active Substance: CORTICOTROPIN
     Indication: Product used for unknown indication
     Route: 058
     Dates: start: 20250614

REACTIONS (6)
  - Pruritus [Unknown]
  - Swelling face [Unknown]
  - Throat irritation [Unknown]
  - Headache [Unknown]
  - Feeling hot [Unknown]
  - Rash [Unknown]

NARRATIVE: CASE EVENT DATE: 20250614
